FAERS Safety Report 26168262 (Version 1)
Quarter: 2025Q4

REPORT INFORMATION
  Report Type: Spontaneous
  Country: JP (occurrence: JP)
  Receive Date: 20251217
  Receipt Date: 20251217
  Transmission Date: 20260118
  Serious: Yes (Hospitalization, Other)
  Sender: ALEXION PHARMACEUTICALS
  Company Number: JP-AstraZeneca-CH-00968523A

PATIENT
  Age: 78 Year
  Sex: Female
  Weight: 46 kg

DRUGS (1)
  1. DAPAGLIFLOZIN [Suspect]
     Active Substance: DAPAGLIFLOZIN
     Indication: Cardiac failure chronic
     Dosage: 10 MILLIGRAM, QD
     Route: 061
     Dates: start: 20250715

REACTIONS (3)
  - Ketoacidosis [Recovered/Resolved]
  - Stress cardiomyopathy [Unknown]
  - Cardiogenic shock [Unknown]

NARRATIVE: CASE EVENT DATE: 20251022
